FAERS Safety Report 20589108 (Version 3)
Quarter: 2023Q1

REPORT INFORMATION
  Report Type: Spontaneous
  Country: DE (occurrence: DE)
  Receive Date: 20220314
  Receipt Date: 20230101
  Transmission Date: 20230417
  Serious: Yes (Hospitalization, Other)
  Sender: FDA-Public Use
  Company Number: DE-NOVARTISPH-NVSC2022DE057830

PATIENT
  Age: 80 Year
  Sex: Male

DRUGS (11)
  1. DEXAMETHASONE [Suspect]
     Active Substance: DEXAMETHASONE
     Indication: Plasma cell myeloma
     Dosage: 20 MG, FOR 4 DAYS, FREQUENCY TEXT: NOT PROVIDED
     Route: 048
     Dates: start: 20200624, end: 202010
  2. DEXAMETHASONE [Suspect]
     Active Substance: DEXAMETHASONE
     Dosage: 20 MG
     Route: 048
     Dates: start: 20201002
  3. REVLIMID [Suspect]
     Active Substance: LENALIDOMIDE
     Indication: Plasma cell myeloma
     Dosage: 10 MG (CAPSULE)
     Route: 048
     Dates: start: 20200626, end: 20210215
  4. REVLIMID [Suspect]
     Active Substance: LENALIDOMIDE
     Dosage: 10 MG (CAPSULE)
     Route: 048
     Dates: start: 20201001
  5. REVLIMID [Suspect]
     Active Substance: LENALIDOMIDE
     Dosage: 10 MG
     Route: 048
     Dates: start: 20201010
  6. REVLIMID [Suspect]
     Active Substance: LENALIDOMIDE
     Dosage: 40 MG
     Route: 048
     Dates: start: 20200624, end: 20201006
  7. REVLIMID [Suspect]
     Active Substance: LENALIDOMIDE
     Dosage: FREQUENCY TEXT: NOT PROVIDED10 MILLIGRAM
     Route: 048
     Dates: start: 20200626, end: 20210215
  8. ELIQUIS [Concomitant]
     Active Substance: APIXABAN
     Indication: Atrial fibrillation
     Dosage: 10 MG, QD (5 MILLIGRAM)
     Route: 048
     Dates: start: 202009
  9. ELIQUIS [Concomitant]
     Active Substance: APIXABAN
     Indication: Arrhythmia
  10. PALLADONE [Concomitant]
     Active Substance: HYDROMORPHONE HYDROCHLORIDE
     Indication: Product used for unknown indication
     Dosage: 16 MG, QD, 8 MILLIGRAM
     Route: 048
     Dates: start: 202009, end: 202010
  11. PALLADONE [Concomitant]
     Active Substance: HYDROMORPHONE HYDROCHLORIDE
     Dosage: 8 MG, QD (4 MG)
     Route: 048
     Dates: start: 202010

REACTIONS (10)
  - Suicidal ideation [Unknown]
  - Hypocalcaemia [Recovered/Resolved]
  - Confusional state [Unknown]
  - Cardiac failure [Unknown]
  - Oedema peripheral [Unknown]
  - General physical health deterioration [Unknown]
  - Atrial flutter [Unknown]
  - Hypokalaemia [Not Recovered/Not Resolved]
  - Toxicity to various agents [Recovering/Resolving]
  - Inflammatory marker increased [Not Recovered/Not Resolved]

NARRATIVE: CASE EVENT DATE: 20201006
